FAERS Safety Report 17254212 (Version 10)
Quarter: 2020Q3

REPORT INFORMATION
  Report Type: Spontaneous
  Country: CZ (occurrence: CZ)
  Receive Date: 20200109
  Receipt Date: 20200715
  Transmission Date: 20201102
  Serious: Yes (Death, Life-Threatening, Hospitalization, Other)
  Sender: FDA-Public Use
  Company Number: CZ-MYLANLABS-2020M1002035

PATIENT
  Age: 60 Year
  Sex: Male

DRUGS (18)
  1. CYCLOPHOSPHAMIDE. [Suspect]
     Active Substance: CYCLOPHOSPHAMIDE
     Indication: CHRONIC LYMPHOCYTIC LEUKAEMIA
     Dosage: PART OF FCR REGIMEN, CHEMOIMMUNOTHERAPY REGIMEN AND R?CHOP REGIMEN
  2. DEXAMETHASONE. [Suspect]
     Active Substance: DEXAMETHASONE
     Indication: CHRONIC LYMPHOCYTIC LEUKAEMIA
     Dosage: PART OF CHEMOIMMUNOTHERAPY REGIMEN
  3. PREDNISOLONE. [Suspect]
     Active Substance: PREDNISOLONE
     Indication: CHRONIC LYMPHOCYTIC LEUKAEMIA
     Dosage: UNK,
  4. DOXORUBICIN [Suspect]
     Active Substance: DOXORUBICIN
     Indication: RICHTER^S SYNDROME
     Dosage: UNK
     Dates: start: 2018
  5. PREDNISOLONE. [Suspect]
     Active Substance: PREDNISOLONE
     Indication: RICHTER^S SYNDROME
     Dosage: UNK, PART OF R?CHOP
  6. VINCRISTINE [Suspect]
     Active Substance: VINCRISTINE
     Indication: RICHTER^S SYNDROME
     Dosage: UNK
     Dates: start: 2018
  7. CYCLOPHOSPHAMIDE. [Suspect]
     Active Substance: CYCLOPHOSPHAMIDE
     Indication: RICHTER^S SYNDROME
     Dosage: UNK
     Dates: start: 2018
  8. IBRUTINIB [Concomitant]
     Active Substance: IBRUTINIB
     Indication: CHRONIC LYMPHOCYTIC LEUKAEMIA
     Dosage: 420 MILLIGRAM, QD
     Route: 048
     Dates: start: 201706
  9. BENDAMUSTINE HYDROCHLORIDE. [Suspect]
     Active Substance: BENDAMUSTINE HYDROCHLORIDE
     Indication: CHRONIC LYMPHOCYTIC LEUKAEMIA
     Dosage: 2 CYCLES IN CHEMOIMMUNOTHERAPY REGIMEN
  10. VINCRISTINE [Suspect]
     Active Substance: VINCRISTINE
     Indication: CHRONIC LYMPHOCYTIC LEUKAEMIA
     Dosage: UNK, PART OF R?CHOP
  11. DOXORUBICIN [Suspect]
     Active Substance: DOXORUBICIN
     Indication: CHRONIC LYMPHOCYTIC LEUKAEMIA
     Dosage: UNK PART OF R?CHOP
  12. RITUXIMAB. [Suspect]
     Active Substance: RITUXIMAB
     Indication: CHRONIC LYMPHOCYTIC LEUKAEMIA
     Dosage: PART OF FCR REGIMEN, CHEMOIMMUNOTHERAPY REGIMEN AND R?CHOP REGIMEN
  13. VENETOCLAX. [Concomitant]
     Active Substance: VENETOCLAX
     Indication: CHRONIC LYMPHOCYTIC LEUKAEMIA
     Dosage: 20 MG, QD INITIAL DOSE, FOLLOWED BY GRADUAL DOSE ESCALATION ACCORDING TO A STANDARD SCHEDU
     Route: 048
  14. FLUDARABINE [Suspect]
     Active Substance: FLUDARABINE PHOSPHATE
     Indication: CHRONIC LYMPHOCYTIC LEUKAEMIA
     Dosage: PART OF FCR REGIMEN
     Route: 065
  15. RITUXIMAB. [Suspect]
     Active Substance: RITUXIMAB
     Indication: RICHTER^S SYNDROME
     Dosage: UNK
     Dates: start: 2018
  16. GEMCITABINE. [Suspect]
     Active Substance: GEMCITABINE
     Indication: CHRONIC LYMPHOCYTIC LEUKAEMIA
     Dosage: UNK
     Route: 065
  17. PREDNISONE. [Suspect]
     Active Substance: PREDNISONE
     Indication: RICHTER^S SYNDROME
     Dosage: UNK, CYCLE R?CHOP
     Dates: start: 2018
  18. PREDNISONE. [Suspect]
     Active Substance: PREDNISONE
     Dosage: UNK

REACTIONS (15)
  - Malignant neoplasm progression [Recovering/Resolving]
  - Night sweats [Unknown]
  - Condition aggravated [Fatal]
  - Chronic lymphocytic leukaemia transformation [Unknown]
  - Chronic lymphocytic leukaemia recurrent [Unknown]
  - Chronic lymphocytic leukaemia refractory [Unknown]
  - Drug ineffective [Fatal]
  - Chronic lymphocytic leukaemia [Recovering/Resolving]
  - Thrombocytopenia [Fatal]
  - Neutropenic sepsis [Unknown]
  - Product use in unapproved indication [Unknown]
  - Treatment failure [Unknown]
  - Richter^s syndrome [Fatal]
  - Off label use [Unknown]
  - Abdominal lymphadenopathy [Recovering/Resolving]

NARRATIVE: CASE EVENT DATE: 201110
